FAERS Safety Report 15983952 (Version 10)
Quarter: 2019Q3

REPORT INFORMATION
  Report Type: Spontaneous
  Country: CA (occurrence: CA)
  Receive Date: 20190219
  Receipt Date: 20190921
  Transmission Date: 20191004
  Serious: Yes (Other)
  Sender: FDA-Public Use
  Company Number: CA-CELLTRION INC.-2018CA021191

PATIENT

DRUGS (17)
  1. INFLECTRA [Suspect]
     Active Substance: INFLIXIMAB-DYYB
     Indication: COLITIS ULCERATIVE
     Dosage: 10 MG/KG, ON WEEK 0
     Route: 042
     Dates: start: 20180501, end: 20180501
  2. INFLECTRA [Suspect]
     Active Substance: INFLIXIMAB-DYYB
     Dosage: 5 MG/KG EVERY (Q) 2, 6 WEEKS THEN EVERY 8 WEEKS
     Route: 042
     Dates: start: 20181220
  3. INFLECTRA [Suspect]
     Active Substance: INFLIXIMAB-DYYB
     Dosage: 5 MG/KG EVERY (Q) 2, 6 WEEKS THEN EVERY 8 WEEKS
     Route: 042
     Dates: start: 20190408
  4. INFLECTRA [Suspect]
     Active Substance: INFLIXIMAB-DYYB
     Dosage: 5 MG/KG EVERY (Q) 2, 6 WEEKS THEN EVERY 8 WEEKS
     Route: 042
     Dates: start: 20190604
  5. FERROUS GLUCONATE [Concomitant]
     Active Substance: FERROUS GLUCONATE
     Dosage: 300 MG, 1X/DAY
     Route: 048
  6. INFLECTRA [Suspect]
     Active Substance: INFLIXIMAB-DYYB
     Dosage: 5 MG/KG EVERY (Q) 2, 6 WEEKS THEN EVERY 8 WEEKS
     Route: 042
     Dates: start: 20181022
  7. ASACOL [Concomitant]
     Active Substance: MESALAMINE
     Dosage: UNK
     Route: 065
  8. INFLECTRA [Suspect]
     Active Substance: INFLIXIMAB-DYYB
     Dosage: 5 MG/KG EVERY (Q) 2, 6 WEEKS THEN EVERY 8 WEEKS
     Route: 042
     Dates: start: 20190604
  9. PREDNISONE. [Concomitant]
     Active Substance: PREDNISONE
     Dosage: 40 MG, 1X/DAY (THEN 30MG AND TAPERING OFF)
     Route: 048
  10. INFLECTRA [Suspect]
     Active Substance: INFLIXIMAB-DYYB
     Dosage: 5 MG/KG EVERY (Q) 2, 6 WEEKS THEN EVERY 8 WEEKS
     Route: 042
     Dates: start: 20180525
  11. INFLECTRA [Suspect]
     Active Substance: INFLIXIMAB-DYYB
     Dosage: 5 MG/KG EVERY (Q) 2, 6 WEEKS THEN EVERY 8 WEEKS
     Route: 042
     Dates: start: 20190211
  12. INFLECTRA [Suspect]
     Active Substance: INFLIXIMAB-DYYB
     Dosage: 5 MG/KG EVERY (Q) 2, 6 WEEKS THEN EVERY 8 WEEKS
     Route: 042
     Dates: start: 20190730
  13. INFLECTRA [Suspect]
     Active Substance: INFLIXIMAB-DYYB
     Dosage: 5 MG/KG EVERY (Q) 2, 6 WEEKS THEN EVERY 8 WEEKS
     Route: 042
     Dates: start: 20180525
  14. INFLECTRA [Suspect]
     Active Substance: INFLIXIMAB-DYYB
     Dosage: 5 MG/KG EVERY (Q) 2, 6 WEEKS THEN EVERY 8 WEEKS
     Route: 042
     Dates: start: 20180821
  15. MEZAVANT [Concomitant]
     Active Substance: MESALAMINE
     Dosage: 3.6 G, DAILY (3 TABS)
     Route: 065
  16. INFLECTRA [Suspect]
     Active Substance: INFLIXIMAB-DYYB
     Dosage: 5 MG/KG EVERY (Q) 2, 6 WEEKS THEN EVERY 8 WEEKS
     Route: 042
     Dates: start: 20180626
  17. VITAMIN D [Concomitant]
     Active Substance: VITAMIN D NOS
     Dosage: 2000-3000 IU, UNK
     Route: 065

REACTIONS (15)
  - Oropharyngeal pain [Not Recovered/Not Resolved]
  - Off label use [Unknown]
  - Flatulence [Unknown]
  - Therapeutic product effect incomplete [Unknown]
  - Fatigue [Unknown]
  - Condition aggravated [Not Recovered/Not Resolved]
  - Cough [Unknown]
  - Rhinorrhoea [Unknown]
  - Ear infection [Recovered/Resolved]
  - Frequent bowel movements [Not Recovered/Not Resolved]
  - Haematochezia [Not Recovered/Not Resolved]
  - Nasopharyngitis [Unknown]
  - Intentional product use issue [Unknown]
  - Malaise [Unknown]
  - Pain [Unknown]

NARRATIVE: CASE EVENT DATE: 201810
